FAERS Safety Report 9305274 (Version 1)
Quarter: 2013Q2

REPORT INFORMATION
  Report Type: Spontaneous
  Country: US (occurrence: US)
  Receive Date: 20130523
  Receipt Date: 20130523
  Transmission Date: 20140414
  Serious: No
  Sender: FDA-Public Use
  Company Number: US-BAYER-2013-063782

PATIENT
  Age: 67 Year
  Sex: Male

DRUGS (4)
  1. LEVITRA [Suspect]
     Indication: ERECTILE DYSFUNCTION
     Dosage: 10 MG, OW, HALF OF 20 MG
     Route: 048
     Dates: start: 20130416
  2. LEVITRA [Suspect]
     Indication: ERECTILE DYSFUNCTION
     Dosage: TOOK A FULL LEVITRA ONCE
     Dates: start: 20130520, end: 20130520
  3. LISINOPRIL [Concomitant]
     Dosage: 40 MG, AT NIGHT
  4. SIMVASTATIN [Concomitant]
     Dosage: 40 MG, AT NIGHT

REACTIONS (2)
  - Drug ineffective [Not Recovered/Not Resolved]
  - Wrong technique in drug usage process [None]
